FAERS Safety Report 5677073-1 (Version None)
Quarter: 2008Q1

REPORT INFORMATION
  Report Type: 
  Country: None (occurrence: None)
  Receive Date: 20080318
  Receipt Date: 20080305
  Transmission Date: 20080703
  Serious: Yes (Hospitalization)
  Sender: FDA-Public Use
  Company Number: 2007-01795

PATIENT
  Age: 62 Year
  Sex: Female
  Weight: 66 kg

DRUGS (8)
  1. VELCADE [Suspect]
     Indication: MULTIPLE MYELOMA
     Dosage: 2.20 MG, INTRAVENOUS
     Route: 042
     Dates: start: 20070130
  2. L-THROXIN-NATRIUM           (LEVOTHYROXINE SODIUM) [Concomitant]
  3. BISOPROLOL FUMARATE [Concomitant]
  4. TILIDIN           (NALOXONE HYDROCHLORIDE, TILIDINE-HYDROCHLORIDE) [Concomitant]
  5. BISPHOSPHONATES [Concomitant]
  6. ALIZAPRIDE               (ALIZAPRIDE) [Concomitant]
  7. POTASSIUM           (POTASSIUM) [Concomitant]
  8. NALOXONE [Concomitant]

REACTIONS (4)
  - PAIN IN EXTREMITY [None]
  - POLYNEUROPATHY [None]
  - RESTLESS LEGS SYNDROME [None]
  - SYNCOPE [None]
